FAERS Safety Report 12084905 (Version 8)
Quarter: 2018Q4

REPORT INFORMATION
  Report Type: Spontaneous
  Country: US (occurrence: US)
  Receive Date: 20160217
  Receipt Date: 20181008
  Transmission Date: 20190204
  Serious: Yes (Hospitalization, Other)
  Sender: FDA-Public Use
  Company Number: US-PFIZER INC-2016085063

PATIENT
  Age: 52 Year
  Sex: Male
  Weight: 82 kg

DRUGS (12)
  1. LYRICA [Suspect]
     Active Substance: PREGABALIN
     Dosage: WENT BACK TO 150MG DOSE
  2. LYRICA [Suspect]
     Active Substance: PREGABALIN
     Dosage: 4 DF, DAILY
  3. LYRICA [Suspect]
     Active Substance: PREGABALIN
     Indication: DIABETIC NEUROPATHY
     Dosage: 150 MG, 3X/DAY
     Dates: start: 2012
  4. LEVEMIR [Concomitant]
     Active Substance: INSULIN DETEMIR
     Indication: DIABETES MELLITUS
     Dosage: 45 UNITS INJECTION ONE TIME A DAY IN MORNING
  5. ASPIRIN. [Concomitant]
     Active Substance: ASPIRIN
     Dosage: UNK
     Dates: start: 2012
  6. LISINOPRIL. [Concomitant]
     Active Substance: LISINOPRIL
     Dosage: UNK
     Dates: start: 1999
  7. ASPIRIN. [Concomitant]
     Active Substance: ASPIRIN
     Indication: CARDIAC DISORDER
     Dosage: 81MG ONE TIME A DAY
  8. LEVEMIR [Concomitant]
     Active Substance: INSULIN DETEMIR
     Dosage: UNK
     Dates: start: 2012
  9. LYRICA [Suspect]
     Active Substance: PREGABALIN
     Dosage: INCREASED THE DOSE TO 300MG
  10. LYRICA [Suspect]
     Active Substance: PREGABALIN
     Dosage: UNK, 2X/DAY
  11. LYRICA [Suspect]
     Active Substance: PREGABALIN
     Dosage: 150MG THREE TIMES A DAY
     Dates: start: 201506
  12. LISINOPRIL. [Concomitant]
     Active Substance: LISINOPRIL
     Indication: RENAL DISORDER
     Dosage: EITHER 10 OR 20MG

REACTIONS (10)
  - Condition aggravated [Unknown]
  - Drug intolerance [Recovered/Resolved]
  - Pain in extremity [Not Recovered/Not Resolved]
  - Sleep disorder [Not Recovered/Not Resolved]
  - Drug dependence [Unknown]
  - Intentional product use issue [Not Recovered/Not Resolved]
  - Prescribed overdose [Unknown]
  - Drug ineffective [Unknown]
  - Pain [Not Recovered/Not Resolved]
  - Intentional product use issue [Unknown]

NARRATIVE: CASE EVENT DATE: 2012
